FAERS Safety Report 14245631 (Version 4)
Quarter: 2018Q1

REPORT INFORMATION
  Report Type: Spontaneous
  Country: FI (occurrence: FI)
  Receive Date: 20171203
  Receipt Date: 20180202
  Transmission Date: 20180508
  Serious: Yes (Disabling, Other)
  Sender: FDA-Public Use
  Company Number: FI-UCBSA-2017047860

PATIENT
  Age: 38 Year
  Sex: Male

DRUGS (3)
  1. LEVETIRACETAM. [Suspect]
     Active Substance: LEVETIRACETAM
     Indication: FRONTAL LOBE EPILEPSY
     Dosage: UNKNOWN DOSE
  2. CLOBAZAM [Concomitant]
     Active Substance: CLOBAZAM
     Indication: FRONTAL LOBE EPILEPSY
     Dosage: (STRENGTH 20 MG)
  3. OXCARBAZEPINE. [Suspect]
     Active Substance: OXCARBAZEPINE
     Indication: FRONTAL LOBE EPILEPSY
     Dosage: UNKNOWN DOSE

REACTIONS (11)
  - Sleep apnoea syndrome [Unknown]
  - Fatigue [Unknown]
  - Obstructive airways disorder [Unknown]
  - Rapid eye movements sleep abnormal [Unknown]
  - Anxiety [Unknown]
  - Insomnia [Recovering/Resolving]
  - Irregular sleep phase [Unknown]
  - Terminal insomnia [Recovering/Resolving]
  - Depressed mood [Unknown]
  - Middle insomnia [Recovering/Resolving]
  - Nervousness [Unknown]
